FAERS Safety Report 11228112 (Version 1)
Quarter: 2015Q2

REPORT INFORMATION
  Report Type: Spontaneous
  Country: US (occurrence: US)
  Receive Date: 20150630
  Receipt Date: 20150630
  Transmission Date: 20150821
  Serious: No
  Sender: FDA-Public Use
  Company Number: US-BAUSCH-BL-2015-011261

PATIENT
  Age: 84 Year
  Sex: Male
  Weight: 99.43 kg

DRUGS (1)
  1. JUBLIA [Suspect]
     Active Substance: EFINACONAZOLE
     Indication: ONYCHOMYCOSIS
     Route: 061
     Dates: start: 201501, end: 20150402

REACTIONS (2)
  - Peripheral swelling [Recovering/Resolving]
  - Tenderness [Recovered/Resolved]
